FAERS Safety Report 4356301-9 (Version None)
Quarter: 2004Q2

REPORT INFORMATION
  Report Type: 
  Country: None (occurrence: None)
  Receive Date: 20040510
  Receipt Date: 20040510
  Transmission Date: 20050107
  Serious: Yes (Disabling)
  Sender: FDA-Public Use
  Company Number: None

PATIENT
  Age: 69 Year
  Sex: Male
  Weight: 114.3065 kg

DRUGS (4)
  1. LOVENOX [Suspect]
     Indication: THROMBOSIS PROPHYLAXIS
     Dosage: 200 MG /DAY
     Dates: start: 20040407, end: 20040410
  2. COUMADIN [Concomitant]
  3. CRESTOR [Concomitant]
  4. LOTREL [Concomitant]

REACTIONS (3)
  - ARTHRALGIA [None]
  - DIFFICULTY IN WALKING [None]
  - JOINT STIFFNESS [None]
